FAERS Safety Report 8818503 (Version 1)
Quarter: 2012Q4

REPORT INFORMATION
  Report Type: Spontaneous
  Country: US (occurrence: None)
  Receive Date: 20121003
  Receipt Date: 20121003
  Transmission Date: 20130627
  Serious: Yes (Hospitalization, Other)
  Sender: FDA-Public Use
  Company Number: 2012MA011539

PATIENT
  Age: 18 Year
  Sex: Female
  Weight: 58.97 kg

DRUGS (1)
  1. LORAZEPAM [Suspect]
     Indication: MRI
     Route: 048
     Dates: start: 20120917, end: 20120917

REACTIONS (8)
  - Dizziness [None]
  - Abnormal behaviour [None]
  - Movement disorder [None]
  - Dysstasia [None]
  - Loss of consciousness [None]
  - Heart rate irregular [None]
  - Somnolence [None]
  - Headache [None]
